FAERS Safety Report 25084385 (Version 3)
Quarter: 2025Q3

REPORT INFORMATION
  Report Type: Spontaneous
  Country: US (occurrence: US)
  Receive Date: 20250317
  Receipt Date: 20250817
  Transmission Date: 20251020
  Serious: No
  Sender: SANOFI AVENTIS
  Company Number: US-SA-2025SA077513

PATIENT
  Age: 32 Year
  Sex: Male

DRUGS (9)
  1. ELOCTATE [Suspect]
     Active Substance: EFMOROCTOCOG ALFA
     Indication: Factor VIII deficiency
     Route: 042
     Dates: start: 20250321
  2. ELOCTATE [Suspect]
     Active Substance: EFMOROCTOCOG ALFA
     Indication: Factor VIII deficiency
     Route: 042
     Dates: start: 20250321
  3. ELOCTATE [Suspect]
     Active Substance: EFMOROCTOCOG ALFA
     Route: 042
     Dates: start: 20250321
  4. ELOCTATE [Suspect]
     Active Substance: EFMOROCTOCOG ALFA
     Route: 042
     Dates: start: 20250321
  5. ELOCTATE [Suspect]
     Active Substance: EFMOROCTOCOG ALFA
     Dosage: 500 U: ELOCTATE 499 UNITS/VIAL, 10 VIALS. INFUSE ONE 499 UNIT VIAL ALONG WITH ONE 3200 UNIT VIAL (36
     Route: 042
     Dates: start: 20250501
  6. ELOCTATE [Suspect]
     Active Substance: EFMOROCTOCOG ALFA
     Dosage: 500 U: ELOCTATE 499 UNITS/VIAL, 10 VIALS. INFUSE ONE 499 UNIT VIAL ALONG WITH ONE 3200 UNIT VIAL (36
     Route: 042
     Dates: start: 20250501
  7. ELOCTATE [Suspect]
     Active Substance: EFMOROCTOCOG ALFA
     Dosage: 3000 U: ELOCTATE 3200 UNITS/VIAL, 10 VIALS. INFUSE ONE 499 UNIT VIAL ALONG WITH ONE 3200 UNIT VIAL (
     Route: 042
     Dates: start: 20250501
  8. ELOCTATE [Suspect]
     Active Substance: EFMOROCTOCOG ALFA
     Dosage: 3000 U: ELOCTATE 3200 UNITS/VIAL, 10 VIALS. INFUSE ONE 499 UNIT VIAL ALONG WITH ONE 3200 UNIT VIAL (
     Route: 042
     Dates: start: 20250501
  9. SODIUM CHLORIDE [Concomitant]
     Active Substance: SODIUM CHLORIDE

REACTIONS (3)
  - Haemorrhage [Recovered/Resolved]
  - Pain [Not Recovered/Not Resolved]
  - Arthralgia [Recovering/Resolving]

NARRATIVE: CASE EVENT DATE: 20250101
